FAERS Safety Report 8512974-8 (Version None)
Quarter: 2012Q3

REPORT INFORMATION
  Report Type: 
  Country: None (occurrence: None)
  Receive Date: 20120716
  Receipt Date: 20120704
  Transmission Date: 20120928
  Serious: Yes (Hospitalization)
  Sender: FDA-Public Use
  Company Number: FR-FRI-1000037090

PATIENT
  Age: 88 Year
  Sex: Female

DRUGS (18)
  1. LASIX [Concomitant]
     Dosage: NOT REPORTED
  2. ASPIRIN [Concomitant]
     Dosage: NOT REPORTED
  3. BISOPROLOL FUMARATE [Concomitant]
     Dosage: NOT REPORTED
  4. LANTUS [Concomitant]
     Dosage: NOT REPORTED
  5. RAMIPRIL [Concomitant]
     Dosage: NOT REPORTED
  6. NEORECORMON [Concomitant]
     Dosage: NOT REPORTED
  7. AMLODIPINE BESYLATE [Concomitant]
     Dosage: NOT REPORTED
  8. ESCITALOPRAM [Suspect]
     Dosage: 5 MG
     Route: 048
  9. ATORVASTATIN [Concomitant]
     Dosage: NOT REPORTED
  10. CLOBAZAM [Concomitant]
     Dosage: NOT REPORTED
  11. FERROUS SULFATE TAB [Concomitant]
     Dosage: NOT REPORTED
  12. CACIT [Concomitant]
     Dosage: NOT REPORTED
  13. COSOPT [Concomitant]
     Dosage: NOT REPORTED
  14. IMIPENEM AND CILASTATIN SODIUM [Suspect]
     Indication: URINARY TRACT INFECTION
     Dosage: 1 DF
     Route: 042
     Dates: start: 20110701, end: 20110701
  15. NEXIUM [Concomitant]
     Dosage: NOT REPORTED
  16. CORVASAL [Concomitant]
     Dosage: NOT REPORTED
  17. POTASSIUM CHLORIDE [Concomitant]
     Dosage: NOT REPORTED
  18. MICONAZOLE [Concomitant]
     Dosage: NOT REPORTED

REACTIONS (1)
  - GRAND MAL CONVULSION [None]
